FAERS Safety Report 24382278 (Version 1)
Quarter: 2024Q4

REPORT INFORMATION
  Report Type: Report from Study
  Country: US (occurrence: US)
  Receive Date: 20241001
  Receipt Date: 20241001
  Transmission Date: 20250114
  Serious: Yes (Other)
  Sender: GILEAD
  Company Number: US-GILEAD-2024-0688449

PATIENT
  Sex: Female

DRUGS (3)
  1. AMBRISENTAN [Suspect]
     Active Substance: AMBRISENTAN
     Indication: Pulmonary arterial hypertension
     Dosage: 5 MG, QD
     Route: 065
     Dates: start: 20240806
  2. ELIQUIS [Concomitant]
     Active Substance: APIXABAN
  3. RANEXA [Concomitant]
     Active Substance: RANOLAZINE

REACTIONS (4)
  - Syncope [Recovered/Resolved]
  - Dizziness [Unknown]
  - Tachycardia [Unknown]
  - Drug hypersensitivity [Unknown]
